FAERS Safety Report 17648802 (Version 1)
Quarter: 2020Q2

REPORT INFORMATION
  Report Type: Spontaneous
  Country: US (occurrence: US)
  Receive Date: 20200408
  Receipt Date: 20200408
  Transmission Date: 20200713
  Serious: Yes (Other)
  Sender: FDA-Public Use
  Company Number: US-TEVA-2020-US-1219582

PATIENT

DRUGS (1)
  1. TRAMADOL. [Suspect]
     Active Substance: TRAMADOL
     Route: 065

REACTIONS (9)
  - Seizure [Unknown]
  - Learning disability [Unknown]
  - Drug dependence [Unknown]
  - Substance use disorder [Unknown]
  - Cognitive disorder [Unknown]
  - Liver disorder [Unknown]
  - Constipation [Unknown]
  - Cardiac dysfunction [Unknown]
  - Hypothalamo-pituitary disorder [Unknown]
